FAERS Safety Report 20891290 (Version 1)
Quarter: 2022Q2

REPORT INFORMATION
  Report Type: Report from Study
  Country: US (occurrence: US)
  Receive Date: 20220530
  Receipt Date: 20220530
  Transmission Date: 20220721
  Serious: No
  Sender: FDA-Public Use
  Company Number: US-CELGENE-USA-20211105946

PATIENT
  Age: 73 Year
  Sex: Female
  Weight: 68 kg

DRUGS (4)
  1. REVLIMID [Suspect]
     Active Substance: LENALIDOMIDE
     Indication: Plasma cell myeloma
     Dosage: 20 MILLIGRAM
     Route: 048
     Dates: start: 201609
  2. REVLIMID [Suspect]
     Active Substance: LENALIDOMIDE
     Dosage: 10 MILLIGRAM
     Route: 048
     Dates: start: 201708
  3. REVLIMID [Suspect]
     Active Substance: LENALIDOMIDE
     Dosage: 5 MILLIGRAM
     Route: 048
     Dates: start: 201806
  4. REVLIMID [Suspect]
     Active Substance: LENALIDOMIDE

REACTIONS (9)
  - Joint swelling [Unknown]
  - Diarrhoea [Recovered/Resolved]
  - Pruritus [Unknown]
  - Fatigue [Unknown]
  - Muscle spasms [Unknown]
  - Headache [Unknown]
  - Malaise [Unknown]
  - Back pain [Unknown]
  - White blood cell count decreased [Unknown]
